FAERS Safety Report 6563236-X (Version None)
Quarter: 2010Q1

REPORT INFORMATION
  Report Type: 
  Country: None (occurrence: None)
  Receive Date: 20100130
  Receipt Date: 20091229
  Transmission Date: 20100710
  Serious: No
  Sender: FDA-Public Use
  Company Number: US-ABBOTT-09P-163-0612940-00

PATIENT
  Sex: Female
  Weight: 42.222 kg

DRUGS (6)
  1. HUMIRA [Suspect]
     Indication: RHEUMATOID ARTHRITIS
     Dates: start: 20091123
  2. PREDNISONE [Concomitant]
     Indication: RHEUMATOID ARTHRITIS
  3. FORTEO [Concomitant]
     Indication: RHEUMATOID ARTHRITIS
  4. SULFASALAZINE [Concomitant]
     Indication: DRUG USE FOR UNKNOWN INDICATION
  5. VITAMIN D [Concomitant]
     Indication: HYPOVITAMINOSIS
  6. CALTRATE [Concomitant]
     Indication: OSTEOPOROSIS

REACTIONS (1)
  - DRUG INEFFECTIVE [None]
